FAERS Safety Report 25295168 (Version 1)
Quarter: 2025Q2

REPORT INFORMATION
  Report Type: Spontaneous
  Country: US (occurrence: US)
  Receive Date: 20250511
  Receipt Date: 20250511
  Transmission Date: 20250716
  Serious: No
  Sender: UCB
  Company Number: US-UCBSA-2024021918

PATIENT
  Sex: Female

DRUGS (1)
  1. CIMZIA [Suspect]
     Active Substance: CERTOLIZUMAB PEGOL
     Indication: Crohn^s disease
     Dosage: 400 MILLIGRAM, AT WEEK 0, 2, AND 4, THEN EVERY 4 WEEKS THEREAFTER
     Route: 058

REACTIONS (6)
  - Malaise [Recovered/Resolved]
  - Fatigue [Unknown]
  - Cough [Unknown]
  - Nasopharyngitis [Unknown]
  - Drug ineffective [Unknown]
  - Intentional dose omission [Unknown]
